FAERS Safety Report 8695071 (Version 3)
Quarter: 2012Q4

REPORT INFORMATION
  Report Type: 
  Country: US (occurrence: US)
  Receive Date: 20120731
  Receipt Date: 20121003
  Transmission Date: 20130627
  Serious: Yes (Hospitalization, Other)
  Sender: FDA-Public Use
  Company Number: US-009507513-2011SP050839

PATIENT

DRUGS (1)
  1. NUVARING [Suspect]
     Indication: CONTRACEPTION
     Dosage: UNK
     Dates: start: 200906, end: 20091110

REACTIONS (12)
  - Chest pain [Recovered/Resolved]
  - Pulmonary embolism [Unknown]
  - Deep vein thrombosis [Unknown]
  - Hypertension [Unknown]
  - Cardiac disorder [Unknown]
  - Transfusion [Recovered/Resolved]
  - Antiphospholipid antibodies positive [Unknown]
  - Sterilisation [Unknown]
  - Gastrooesophageal reflux disease [Unknown]
  - Sleep apnoea syndrome [Unknown]
  - Pulmonary hypertension [Unknown]
  - Fall [None]
